FAERS Safety Report 6496392-2 (Version None)
Quarter: 2009Q4

REPORT INFORMATION
  Report Type: 
  Country: None (occurrence: None)
  Receive Date: 20091214
  Receipt Date: 20091203
  Transmission Date: 20100525
  Serious: Yes (Hospitalization)
  Sender: FDA-Public Use
  Company Number: BR-ELI_LILLY_AND_COMPANY-BR200912001093

PATIENT
  Sex: Female
  Weight: 75 kg

DRUGS (13)
  1. BYETTA [Suspect]
     Indication: TYPE 2 DIABETES MELLITUS
     Dosage: 5 UG, UNKNOWN
     Route: 065
  2. BYETTA [Suspect]
     Dosage: 10 UG, UNKNOWN
     Route: 065
     Dates: end: 20090101
  3. MYCOPHENOLATE MOFETIL [Concomitant]
     Dosage: 1 G, 2/D
     Route: 065
  4. SANDIMMUNE [Concomitant]
     Dosage: 25 MG, UNKNOWN
  5. SANDIMMUNE [Concomitant]
     Dosage: 50 MG, EACH EVENING
     Route: 065
  6. METFORMIN [Concomitant]
     Dosage: 850 MG, 3/D
     Route: 065
  7. NPH INSULIN [Concomitant]
     Dosage: 20 IU, UNKNOWN
     Route: 065
  8. AAS [Concomitant]
     Dosage: 100 MG, DAILY (1/D)
     Route: 065
  9. ATENOLOL [Concomitant]
     Dosage: 50 MG, DAILY (1/D)
     Route: 065
  10. HYDROCHLOROTHIAZIDE [Concomitant]
     Dosage: 25 MG, DAILY (1/D)
     Route: 065
  11. RIVOTRIL [Concomitant]
     Dosage: 1 MG, EACH EVENING
     Route: 065
  12. RIVOTRIL [Concomitant]
     Dosage: 2 MG, EACH EVENING
     Route: 065
  13. ESPIRONOLACTONA [Concomitant]
     Dosage: UNK, UNKNOWN
     Route: 065

REACTIONS (9)
  - ABDOMINAL PAIN UPPER [None]
  - DEPRESSION [None]
  - FEEDING DISORDER [None]
  - FEELING ABNORMAL [None]
  - GASTRIC DISORDER [None]
  - GASTROOESOPHAGEAL REFLUX DISEASE [None]
  - OFF LABEL USE [None]
  - PAIN [None]
  - WEIGHT DECREASED [None]
